FAERS Safety Report 21439946 (Version 1)
Quarter: 2022Q4

REPORT INFORMATION
  Report Type: Spontaneous
  Country: US (occurrence: None)
  Receive Date: 20221008
  Receipt Date: 20221008
  Transmission Date: 20230113
  Serious: Yes (Disabling)
  Sender: FDA-Public Use
  Company Number: None

PATIENT
  Sex: Female
  Weight: 99 kg

DRUGS (13)
  1. DUPIXENT [Suspect]
     Active Substance: DUPILUMAB
     Indication: Eczema
     Dosage: OTHER QUANTITY : 1 INJECTION(S);?OTHER FREQUENCY : Q 14 DAYS;?
     Route: 058
     Dates: start: 20220308, end: 20220823
  2. BUPROPION [Concomitant]
     Active Substance: BUPROPION
  3. ADDERALL [Concomitant]
     Active Substance: AMPHETAMINE ASPARTATE\AMPHETAMINE SULFATE\DEXTROAMPHETAMINE SACCHARATE\DEXTROAMPHETAMINE SULFATE
  4. LANSOPRAZOLE [Concomitant]
     Active Substance: LANSOPRAZOLE
  5. CLONAZEPAM [Concomitant]
     Active Substance: CLONAZEPAM
  6. CETIRIZINE [Concomitant]
     Active Substance: CETIRIZINE HYDROCHLORIDE
  7. PRAMIPEXOLE [Concomitant]
     Active Substance: PRAMIPEXOLE
  8. CYANOCOBALAMIN [Concomitant]
     Active Substance: CYANOCOBALAMIN
  9. c [Concomitant]
  10. D [Concomitant]
  11. MULTI [Concomitant]
  12. MELATONIN [Concomitant]
     Active Substance: MELATONIN
  13. 5 HTP [Concomitant]

REACTIONS (11)
  - Eczema [None]
  - Skin exfoliation [None]
  - Blister [None]
  - Pustule [None]
  - Skin exfoliation [None]
  - Scab [None]
  - Ocular hyperaemia [None]
  - Eye irritation [None]
  - Swelling of eyelid [None]
  - Vision blurred [None]
  - Alopecia [None]
